FAERS Safety Report 19469741 (Version 9)
Quarter: 2022Q3

REPORT INFORMATION
  Report Type: Report from Study
  Country: CH (occurrence: CH)
  Receive Date: 20210628
  Receipt Date: 20220711
  Transmission Date: 20221026
  Serious: Yes (Hospitalization)
  Sender: FDA-Public Use
  Company Number: CH-AMGEN-CHENI2021096709

PATIENT
  Age: 77 Year
  Sex: Male
  Weight: 59.6 kg

DRUGS (15)
  1. BLINATUMOMAB [Suspect]
     Active Substance: BLINATUMOMAB
     Indication: Acute lymphocytic leukaemia
     Dosage: 28 MICROGRAM, QD
     Route: 042
     Dates: start: 20210210
  2. BLINATUMOMAB [Suspect]
     Active Substance: BLINATUMOMAB
     Dosage: UNK
     Route: 042
  3. AMLODIPINE BESYLATE [Concomitant]
     Active Substance: AMLODIPINE BESYLATE
     Dosage: 10 MILLIGRAM
     Dates: start: 20200701, end: 20211129
  4. PERINDOPRIL ERBUMINE [Concomitant]
     Active Substance: PERINDOPRIL ERBUMINE
     Dosage: 4 MILLIGRAM
     Dates: start: 202012, end: 20211129
  5. CARVEDILOL [Concomitant]
     Active Substance: CARVEDILOL
     Dosage: 12.5 MILLIGRAM
     Dates: start: 20200701, end: 20211117
  6. TORSEMIDE [Concomitant]
     Active Substance: TORSEMIDE
     Dosage: 2.5 MILLIGRAM
     Dates: start: 202012, end: 20211118
  7. LEVOTHYROXINE [Concomitant]
     Active Substance: LEVOTHYROXINE
     Dosage: 0.05 MILLIGRAM
     Dates: start: 20100108, end: 20211129
  8. ACETAMINOPHEN [Concomitant]
     Active Substance: ACETAMINOPHEN
     Indication: Pyrexia
     Dosage: 500 MILLIGRAM AND 1 GRAM
     Dates: start: 20200819, end: 20211202
  9. ACETAMINOPHEN [Concomitant]
     Active Substance: ACETAMINOPHEN
     Indication: Myalgia
  10. ESOMEPRAZOLE [Concomitant]
     Active Substance: ESOMEPRAZOLE
     Dosage: 20 MILLIGRAM
     Dates: start: 20200819, end: 20211117
  11. LORAZEPAM [Concomitant]
     Active Substance: LORAZEPAM
     Dosage: 0.5 UNK
     Dates: start: 202012, end: 20211118
  12. VALTREX [Concomitant]
     Active Substance: VALACYCLOVIR HYDROCHLORIDE
     Dosage: 500 MILLIGRAM
     Dates: start: 20210216, end: 20211116
  13. METOCLOPRAMIDE [Concomitant]
     Active Substance: METOCLOPRAMIDE
     Dosage: 10 MILLIGRAM
     Dates: start: 20210215, end: 20211201
  14. ICLUSIG [Concomitant]
     Active Substance: PONATINIB
     Dosage: 30 MILLIGRAM
     Dates: start: 20210210, end: 20210826
  15. TAMSULOSIN HYDROCHLORIDE [Concomitant]
     Active Substance: TAMSULOSIN HYDROCHLORIDE
     Dosage: 0.4 MILLIGRAM
     Dates: start: 20210323, end: 20211127

REACTIONS (5)
  - Muscular weakness [Recovered/Resolved]
  - Pyrexia [Recovered/Resolved]
  - Pyrexia [Recovered/Resolved]
  - Myalgia [Recovered/Resolved]
  - Myalgia [Recovered/Resolved]

NARRATIVE: CASE EVENT DATE: 20210526
